FAERS Safety Report 16239115 (Version 1)
Quarter: 2019Q2

REPORT INFORMATION
  Report Type: Spontaneous
  Country: JP (occurrence: JP)
  Receive Date: 20190425
  Receipt Date: 20190425
  Transmission Date: 20190711
  Serious: Yes (Hospitalization)
  Sender: FDA-Public Use
  Company Number: JP-PFIZER INC-2019169597

PATIENT
  Age: 68 Year
  Sex: Male
  Weight: 52.7 kg

DRUGS (13)
  1. REBAMIPIDE [Concomitant]
     Active Substance: REBAMIPIDE
  2. OXINORM (OXYCODONE HYDROCHLORIDE) [Concomitant]
     Active Substance: OXYCODONE HYDROCHLORIDE
  3. FAMOTIDINE. [Concomitant]
     Active Substance: FAMOTIDINE
  4. POLARAMINE [Concomitant]
     Active Substance: DEXCHLORPHENIRAMINE MALEATE
  5. LOXOPROFEN [Concomitant]
     Active Substance: LOXOPROFEN
  6. DEXART [Concomitant]
     Active Substance: DEXAMETHASONE SODIUM PHOSPHATE
  7. CYRAMZA [Suspect]
     Active Substance: RAMUCIRUMAB
     Indication: GASTRIC CANCER RECURRENT
     Dosage: 400 MG, DAILY
     Route: 041
     Dates: start: 20180704, end: 20180829
  8. PRAZAXA [Concomitant]
     Active Substance: DABIGATRAN ETEXILATE MESYLATE
  9. DOGMATYL [Concomitant]
     Active Substance: SULPIRIDE
  10. PACLITAXEL HOSPIRA [Suspect]
     Active Substance: PACLITAXEL
     Indication: GASTRIC CANCER RECURRENT
     Dosage: 110 MG, DAILY
     Route: 041
     Dates: start: 20180704, end: 20180829
  11. GRANISETRON [Concomitant]
     Active Substance: GRANISETRON
  12. OXYCONTIN [Concomitant]
     Active Substance: OXYCODONE HYDROCHLORIDE
  13. OLMETEC [Concomitant]
     Active Substance: OLMESARTAN MEDOXOMIL

REACTIONS (1)
  - Supraventricular tachycardia [Recovering/Resolving]

NARRATIVE: CASE EVENT DATE: 20180801
